FAERS Safety Report 9928607 (Version 2)
Quarter: 2014Q2

REPORT INFORMATION
  Report Type: Spontaneous
  Country: FR (occurrence: FR)
  Receive Date: 20140227
  Receipt Date: 20140522
  Transmission Date: 20141212
  Serious: Yes (Hospitalization)
  Sender: FDA-Public Use
  Company Number: FR-PFIZER INC-2014050388

PATIENT
  Age: 60 Year
  Sex: Female

DRUGS (14)
  1. TAHOR [Suspect]
     Dosage: UNK
     Route: 048
     Dates: end: 20131030
  2. LEVETIRACETAM MYLAN PHARMA [Suspect]
     Dosage: 500 MG, 2X/DAY
     Route: 048
     Dates: start: 20131016, end: 20131104
  3. VANCOMYCIN MYLAN [Suspect]
     Dosage: 4 G, 1X/DAY
     Route: 041
     Dates: start: 20131015, end: 20131029
  4. VANCOMYCIN MYLAN [Suspect]
     Dosage: UNK, SINGLE
     Dates: start: 20131102
  5. EUPRESSYL [Suspect]
     Dosage: 60 MG, 1X/DAY
     Route: 048
     Dates: start: 20131027, end: 20131103
  6. THIOCOLCHICOSIDE EG [Suspect]
     Dosage: 4 MG, 3X/DAY
     Route: 048
     Dates: start: 20131028, end: 20131031
  7. INEXIUM /01479302/ [Suspect]
     Dosage: UNK
     Route: 048
     Dates: end: 20131030
  8. LOXEN [Concomitant]
  9. CEFEPIME [Concomitant]
     Dosage: UNK
     Dates: start: 20131015, end: 20131029
  10. DIFFU K [Concomitant]
  11. PERFALGAN [Concomitant]
  12. LOVENOX [Concomitant]
  13. CETIRIZINE HCL [Concomitant]
  14. SOLU-MEDROL [Concomitant]

REACTIONS (1)
  - Drug reaction with eosinophilia and systemic symptoms [Recovered/Resolved]
